FAERS Safety Report 6745068 (Version 8)
Quarter: 2014Q2

REPORT INFORMATION
  Report Type: Report from Study
  Country: DE (occurrence: DE)
  Receive Date: 20080902
  Receipt Date: 20140624
  Transmission Date: 20141212
  Serious: Yes (Hospitalization, Other)
  Sender: FDA-Public Use
  Company Number: PHHO2008DE10044

PATIENT
  Sex: 0

DRUGS (6)
  1. SANDIMMUN OPTORAL [Suspect]
     Indication: RENAL TRANSPLANT
     Dosage: 200 MG, BID
     Route: 048
     Dates: start: 20080722
  2. SANDIMMUN OPTORAL [Suspect]
     Dosage: 225 MG, BID
     Route: 048
  3. SANDIMMUN OPTORAL [Suspect]
     Dosage: 125 MG, BID
     Route: 048
  4. MYFORTIC [Suspect]
     Indication: RENAL TRANSPLANT
     Dosage: 360 MG, BID
     Route: 048
     Dates: start: 20080722
  5. NO TREATMENT RECEIVED [Suspect]
     Indication: RENAL TRANSPLANT
     Dosage: NO TREATMENT
  6. URBASON [Concomitant]

REACTIONS (7)
  - Nephrocalcinosis [Not Recovered/Not Resolved]
  - Renal tubular necrosis [Recovered/Resolved with Sequelae]
  - Renal tubular disorder [Recovered/Resolved with Sequelae]
  - Complications of transplanted kidney [Recovered/Resolved]
  - Renal impairment [Recovered/Resolved]
  - Lymphocele [Recovered/Resolved]
  - Seroma [Recovered/Resolved]
